FAERS Safety Report 5944462-7 (Version None)
Quarter: 2008Q4

REPORT INFORMATION
  Report Type: 
  Country: None (occurrence: None)
  Receive Date: 20081107
  Receipt Date: 20081029
  Transmission Date: 20090506
  Serious: Yes (Other)
  Sender: FDA-Public Use
  Company Number: US-JNJFOC-20081100405

PATIENT
  Sex: Female
  Weight: 49.9 kg

DRUGS (2)
  1. DURAGESIC-100 [Suspect]
     Indication: BACK PAIN
     Dosage: 75 UG/HR (25+25+25) THREE IN 72 HOURS
     Route: 062
  2. PERCOCET [Concomitant]
     Route: 048

REACTIONS (4)
  - DRUG INEFFECTIVE [None]
  - DRY MOUTH [None]
  - PANCREATITIS [None]
  - TOOTH LOSS [None]
